FAERS Safety Report 4942890-X (Version None)
Quarter: 2006Q1

REPORT INFORMATION
  Report Type: 
  Country: None (occurrence: None)
  Receive Date: 20060309
  Receipt Date: 20060301
  Transmission Date: 20060701
  Serious: Yes (Hospitalization)
  Sender: FDA-Public Use
  Company Number: 2006031025

PATIENT
  Age: 40 Year
  Sex: Female
  Weight: 64 kg

DRUGS (2)
  1. LYRICA [Suspect]
     Indication: PAIN
     Dosage: ORAL
     Route: 048
     Dates: start: 20060109
  2. DOCETAXEL (DOCETAXEL) [Suspect]
     Indication: BREAST CANCER
     Dosage: 169 MG INTRAVENOUS
     Route: 042
     Dates: start: 20060105, end: 20060105

REACTIONS (3)
  - DIARRHOEA [None]
  - LEUKOPENIA [None]
  - PAIN [None]
